FAERS Safety Report 4654075-5 (Version None)
Quarter: 2005Q2

REPORT INFORMATION
  Report Type: 
  Country: None (occurrence: None)
  Receive Date: 20050504
  Receipt Date: 20050421
  Transmission Date: 20051028
  Serious: Yes (Hospitalization)
  Sender: FDA-Public Use
  Company Number: 211907

PATIENT
  Age: 85 Year
  Sex: Male

DRUGS (6)
  1. MABTHERA (RITUXIMAB) CONC FOR SOLUTION FOR INFUSION [Suspect]
     Indication: WALDENSTROM'S MACROGLOBULINAEMIA
     Dosage: 640 MG, INTRAVENOUS
     Route: 042
     Dates: start: 20041209, end: 20041216
  2. OMEPRAZOLE [Suspect]
     Dosage: 20 MG, QD, ORAL
     Route: 048
  3. IMOVANE (ZOPICLONE) [Suspect]
     Dosage: 1 UNK, QD ORAL
     Route: 048
     Dates: start: 20040928
  4. ALLOPURINOL [Suspect]
     Dosage: 200 MG, QD, ORAL
     Route: 048
     Dates: start: 20041004, end: 20041223
  5. DI-AANTALVIC (PROPOXYPHENE HYDROCHLORIDE, ACETAMINOPHEN) [Suspect]
     Dosage: 2 UNK, TID, ORAL
     Route: 048
     Dates: start: 20041002
  6. CORDARONE [Suspect]
     Dosage: 200 MG , QD, ORAL
     Route: 048
     Dates: start: 20041004, end: 20041223

REACTIONS (5)
  - ALANINE AMINOTRANSFERASE INCREASED [None]
  - ASPARTATE AMINOTRANSFERASE INCREASED [None]
  - BLOOD ALKALINE PHOSPHATASE INCREASED [None]
  - RASH MACULO-PAPULAR [None]
  - SKIN EXFOLIATION [None]
